FAERS Safety Report 6898918-3 (Version None)
Quarter: 2010Q3

REPORT INFORMATION
  Report Type: 
  Country: None (occurrence: None)
  Receive Date: 20100802
  Receipt Date: 20071220
  Transmission Date: 20110219
  Serious: No
  Sender: FDA-Public Use
  Company Number: US-PFIZER INC-2007087653

PATIENT
  Sex: Female

DRUGS (12)
  1. LYRICA [Suspect]
     Indication: NEURALGIA
     Dates: start: 20070801
  2. LOPRESSOR [Concomitant]
  3. KEPPRA [Concomitant]
  4. KLONOPIN [Concomitant]
  5. NEXIUM [Concomitant]
  6. AMBIEN [Concomitant]
  7. PERCOCET [Concomitant]
  8. COLACE [Concomitant]
  9. ZANAFLEX [Concomitant]
  10. MULTI-VITAMINS [Concomitant]
  11. TRAZODONE [Concomitant]
  12. PROMETHAZINE [Concomitant]

REACTIONS (5)
  - GINGIVAL PAIN [None]
  - GLOSSODYNIA [None]
  - TONGUE DISCOLOURATION [None]
  - TONGUE DISORDER [None]
  - WEIGHT INCREASED [None]
